FAERS Safety Report 21705780 (Version 2)
Quarter: 2022Q4

REPORT INFORMATION
  Report Type: Report from Study
  Country: GB (occurrence: GB)
  Receive Date: 20221209
  Receipt Date: 20221212
  Transmission Date: 20230113
  Serious: Yes (Hospitalization)
  Sender: FDA-Public Use
  Company Number: GB-002147023-NVSC2022GB278864

PATIENT
  Age: 52 Year
  Sex: Female
  Weight: 87.55 kg

DRUGS (2)
  1. CYCLOPHOSPHAMIDE [Suspect]
     Active Substance: CYCLOPHOSPHAMIDE
     Indication: Acute myeloid leukaemia
     Dosage: 960 MG
     Route: 042
     Dates: start: 20221027
  2. FLUDARABINE [Suspect]
     Active Substance: FLUDARABINE PHOSPHATE
     Indication: Acute myeloid leukaemia
     Dosage: 57.5 MG
     Route: 042
     Dates: start: 20221026

REACTIONS (5)
  - Skin lesion [Unknown]
  - Glossodynia [Unknown]
  - Facial pain [Unknown]
  - Swelling face [Unknown]
  - Tooth infection [Not Recovered/Not Resolved]

NARRATIVE: CASE EVENT DATE: 20221112
